FAERS Safety Report 26116322 (Version 1)
Quarter: 2025Q4

REPORT INFORMATION
  Report Type: Spontaneous
  Country: CA (occurrence: CA)
  Receive Date: 20251203
  Receipt Date: 20251203
  Transmission Date: 20260118
  Serious: Yes (Other)
  Sender: AUROBINDO
  Company Number: CA-AUROBINDO-AUR-APL-2025-060679

PATIENT
  Age: 53 Year
  Sex: Female

DRUGS (4)
  1. HYDRALAZINE [Suspect]
     Active Substance: HYDRALAZINE HYDROCHLORIDE
     Indication: Product used for unknown indication
     Dosage: UNK
     Route: 065
  2. FINGOLIMOD HYDROCHLORIDE [Suspect]
     Active Substance: FINGOLIMOD HYDROCHLORIDE
     Indication: Relapsing-remitting multiple sclerosis
     Dosage: 0.5 MILLIGRAM, ONCE A DAY
  3. DALFAMPRIDINE [Concomitant]
     Active Substance: DALFAMPRIDINE
     Indication: Product used for unknown indication
     Dosage: UNK
     Route: 065
  4. TOZINAMERAN [Concomitant]
     Active Substance: TOZINAMERAN
     Indication: Product used for unknown indication
     Dosage: UNK
     Route: 065

REACTIONS (21)
  - Animal bite [Not Recovered/Not Resolved]
  - Aura [Not Recovered/Not Resolved]
  - Cold sweat [Not Recovered/Not Resolved]
  - Diarrhoea [Not Recovered/Not Resolved]
  - Dizziness [Not Recovered/Not Resolved]
  - Ear disorder [Not Recovered/Not Resolved]
  - Eczema [Not Recovered/Not Resolved]
  - Heart rate increased [Not Recovered/Not Resolved]
  - Hypoaesthesia [Not Recovered/Not Resolved]
  - Labyrinthitis [Not Recovered/Not Resolved]
  - Lhermitte^s sign [Not Recovered/Not Resolved]
  - Mass [Not Recovered/Not Resolved]
  - Meniere^s disease [Not Recovered/Not Resolved]
  - Musculoskeletal stiffness [Not Recovered/Not Resolved]
  - Pallor [Not Recovered/Not Resolved]
  - Palpitations [Not Recovered/Not Resolved]
  - Tinnitus [Not Recovered/Not Resolved]
  - Traumatic haemorrhage [Not Recovered/Not Resolved]
  - Vertigo positional [Not Recovered/Not Resolved]
  - Vomiting [Not Recovered/Not Resolved]
  - White blood cell count decreased [Not Recovered/Not Resolved]
